FAERS Safety Report 8012954-5 (Version None)
Quarter: 2011Q4

REPORT INFORMATION
  Report Type: 
  Country: None (occurrence: None)
  Receive Date: 20111223
  Receipt Date: 20111216
  Transmission Date: 20120403
  Serious: Yes (Other)
  Sender: FDA-Public Use
  Company Number: 1128362

PATIENT
  Age: 58 Year
  Sex: Female
  Weight: 68.18 kg

DRUGS (3)
  1. DOCETAXEL [Suspect]
     Indication: BREAST CANCER
     Dosage: 130 MG,   INTRAVENOUS (NOT OTHERWISE SPECIFIED)
     Route: 042
  2. ALOXI [Concomitant]
  3. (DECADRON 10016001/) [Concomitant]

REACTIONS (3)
  - NAUSEA [None]
  - SENSATION OF PRESSURE [None]
  - ERYTHEMA [None]
